FAERS Safety Report 4319755-X (Version None)
Quarter: 2004Q1

REPORT INFORMATION
  Report Type: 
  Country: None (occurrence: None)
  Receive Date: 20040319
  Receipt Date: 20030410
  Transmission Date: 20041129
  Serious: Yes (Hospitalization)
  Sender: FDA-Public Use
  Company Number: IT-GLAXOSMITHKLINE-B0297222A

PATIENT
  Age: 9 Year
  Sex: Female
  Weight: 25.5 kg

DRUGS (4)
  1. GW433908 [Suspect]
     Indication: HIV INFECTION
     Dosage: 30MGK PER DAY
     Route: 048
     Dates: start: 20030312, end: 20030409
  2. RITONAVIR [Suspect]
     Indication: HIV INFECTION
     Dosage: 6MGK PER DAY
     Dates: start: 20030312, end: 20030409
  3. ABACAVIR [Concomitant]
     Indication: HIV INFECTION
     Dosage: 400MG PER DAY
     Route: 048
     Dates: start: 20030312, end: 20030409
  4. EPIVIR [Concomitant]
     Indication: HIV INFECTION
     Dosage: 200MG PER DAY
     Route: 048
     Dates: start: 20030312, end: 20030409

REACTIONS (8)
  - ABNORMAL CLOTTING FACTOR [None]
  - ACTIVATED PARTIAL THROMBOPLASTIN TIME PROLONGED [None]
  - BRONCHIECTASIS [None]
  - COUGH [None]
  - HAEMOPTYSIS [None]
  - HEPATOTOXICITY [None]
  - PROTHROMBIN TIME ABNORMAL [None]
  - PYREXIA [None]
